FAERS Safety Report 9526400 (Version 3)
Quarter: 2023Q4

REPORT INFORMATION
  Report Type: Spontaneous
  Country: JP (occurrence: JP)
  Receive Date: 20130916
  Receipt Date: 20231001
  Transmission Date: 20240109
  Serious: Yes (Hospitalization)
  Sender: FDA-Public Use
  Company Number: JP-TAKEDA-THQ2013A06289

PATIENT
  Age: 67 Year
  Sex: Male

DRUGS (11)
  1. LANSOPRAZOLE [Suspect]
     Active Substance: LANSOPRAZOLE
     Dosage: 50 MG, TID
     Route: 048
     Dates: end: 20130813
  2. ACTOS [Suspect]
     Active Substance: PIOGLITAZONE HYDROCHLORIDE
     Dosage: 15 MG, UNK
     Route: 048
  3. MIGLITOL [Suspect]
     Active Substance: MIGLITOL
     Route: 048
     Dates: start: 20130301, end: 20130813
  4. MIGLITOL [Suspect]
     Active Substance: MIGLITOL
     Route: 048
     Dates: start: 201308
  5. AZILSARTAN KAMEDOXOMIL [Concomitant]
     Active Substance: AZILSARTAN KAMEDOXOMIL
  6. LIPITOR [Concomitant]
     Active Substance: ATORVASTATIN CALCIUM
  7. AMARYL [Concomitant]
     Active Substance: GLIMEPIRIDE
  8. ASPIRIN [Concomitant]
     Active Substance: ASPIRIN
  9. PLAVIX                             /01220701/ [Concomitant]
  10. JANUVIA [Concomitant]
     Active Substance: SITAGLIPTIN PHOSPHATE
  11. CARVEDILOL [Concomitant]
     Active Substance: CARVEDILOL

REACTIONS (3)
  - Diarrhoea [Recovered/Resolved]
  - Dehydration [Recovered/Resolved]
  - Acute kidney injury [Recovered/Resolved]

NARRATIVE: CASE EVENT DATE: 20130401
